FAERS Safety Report 7465408-9 (Version None)
Quarter: 2011Q2

REPORT INFORMATION
  Report Type: 
  Country: None (occurrence: None)
  Receive Date: 20110509
  Receipt Date: 20100831
  Transmission Date: 20111010
  Serious: No
  Sender: FDA-Public Use
  Company Number: US-BAUSCH-2010BL004905

PATIENT
  Age: 26 Year
  Sex: Female

DRUGS (1)
  1. LOTEMAX [Suspect]
     Indication: POSTOPERATIVE CARE
     Route: 047
     Dates: start: 20100830

REACTIONS (5)
  - PARAESTHESIA ORAL [None]
  - ORAL PRURITUS [None]
  - LIP SWELLING [None]
  - DRUG HYPERSENSITIVITY [None]
  - RHINITIS [None]
